FAERS Safety Report 24823418 (Version 1)
Quarter: 2025Q1

REPORT INFORMATION
  Report Type: Spontaneous
  Country: US (occurrence: US)
  Receive Date: 20250109
  Receipt Date: 20250109
  Transmission Date: 20250408
  Serious: Yes (Other)
  Sender: DR REDDYS
  Company Number: None

PATIENT
  Age: 52 Year
  Sex: Female

DRUGS (8)
  1. DOXORUBICIN [Suspect]
     Active Substance: DOXORUBICIN
     Indication: Malignant fibrous histiocytoma
  2. DOXORUBICIN [Suspect]
     Active Substance: DOXORUBICIN
     Indication: Intestinal metastasis
  3. IFOSFAMIDE [Suspect]
     Active Substance: IFOSFAMIDE
     Indication: Malignant fibrous histiocytoma
  4. IFOSFAMIDE [Suspect]
     Active Substance: IFOSFAMIDE
     Indication: Intestinal metastasis
  5. DEXRAZOXANE [Concomitant]
     Active Substance: DEXRAZOXANE
     Indication: Malignant fibrous histiocytoma
  6. DEXRAZOXANE [Concomitant]
     Active Substance: DEXRAZOXANE
     Indication: Intestinal metastasis
  7. DACARBAZINE [Concomitant]
     Active Substance: DACARBAZINE
     Indication: Malignant fibrous histiocytoma
  8. DACARBAZINE [Concomitant]
     Active Substance: DACARBAZINE
     Indication: Intestinal metastasis

REACTIONS (1)
  - Cardiomyopathy [Recovered/Resolved]
